FAERS Safety Report 9602132 (Version 1)
Quarter: 2013Q4

REPORT INFORMATION
  Report Type: Spontaneous
  Country: GB (occurrence: None)
  Receive Date: 20131002
  Receipt Date: 20131002
  Transmission Date: 20140711
  Serious: Yes (Hospitalization, Other)
  Sender: FDA-Public Use
  Company Number: GER/UKI/13/0034689

PATIENT
  Sex: Male

DRUGS (6)
  1. OLANZAPINE [Suspect]
     Indication: PRODUCT USED FOR UNKNOWN INDICATION
     Route: 048
     Dates: end: 20130830
  2. AMISULPRIDE [Suspect]
     Indication: PRODUCT USED FOR UNKNOWN INDICATION
     Route: 048
     Dates: end: 20130829
  3. PAROXETINE [Suspect]
     Indication: PRODUCT USED FOR UNKNOWN INDICATION
     Route: 048
  4. METFORMIN(METFORMIN) [Concomitant]
  5. PIOGLITAZONE(PIOGLITAZONE) [Concomitant]
  6. SIMVASTATIN(SIMVASTATIN) [Concomitant]

REACTIONS (3)
  - Neuroleptic malignant syndrome [None]
  - Fall [None]
  - Blood creatine phosphokinase increased [None]
